FAERS Safety Report 10912621 (Version 1)
Quarter: 2015Q1

REPORT INFORMATION
  Report Type: Report from Study
  Country: AU (occurrence: AU)
  Receive Date: 20150313
  Receipt Date: 20150313
  Transmission Date: 20150721
  Serious: Yes (Hospitalization)
  Sender: FDA-Public Use
  Company Number: AU-EISAI MEDICAL RESEARCH-EC-2014-001540

PATIENT
  Age: 75 Year
  Sex: Female
  Weight: 44.85 kg

DRUGS (6)
  1. NORVASC [Concomitant]
     Active Substance: AMLODIPINE BESYLATE
  2. LENVATINIB [Suspect]
     Active Substance: LENVATINIB
     Indication: THYROID CANCER
     Route: 048
     Dates: start: 20140224
  3. SLOW-K [Concomitant]
     Active Substance: POTASSIUM CHLORIDE
  4. GASTRO-STOP [Concomitant]
     Active Substance: LOPERAMIDE
  5. THYROXINE [Concomitant]
     Active Substance: LEVOTHYROXINE
  6. LASIX [Concomitant]
     Active Substance: FUROSEMIDE

REACTIONS (1)
  - Haematuria [Recovered/Resolved]

NARRATIVE: CASE EVENT DATE: 20141106
